FAERS Safety Report 7611007-5 (Version None)
Quarter: 2011Q3

REPORT INFORMATION
  Report Type: 
  Country: None (occurrence: None)
  Receive Date: 20110707
  Receipt Date: 20110620
  Transmission Date: 20111222
  Serious: Yes (Hospitalization, Other)
  Sender: FDA-Public Use
  Company Number: ENTC2011-0212

PATIENT
  Age: 90 Year
  Sex: Male

DRUGS (8)
  1. LORAZEPAM [Concomitant]
  2. STALEVO 100 [Suspect]
     Dosage: SEE IMAGE
     Route: 048
     Dates: end: 20110520
  3. ACETAMINOPHEN [Concomitant]
  4. LACTULOSE [Concomitant]
  5. DURAGESIC-100 [Concomitant]
  6. SOTALOL HYDROCHLORIDE [Concomitant]
  7. PERINDOPRIL ERBUMINE [Concomitant]
  8. ASPIRIN [Concomitant]

REACTIONS (7)
  - HYPERTONIA [None]
  - OVERDOSE [None]
  - DRUG ADMINISTRATION ERROR [None]
  - FALL [None]
  - HIP FRACTURE [None]
  - MUTISM [None]
  - CATATONIA [None]
